FAERS Safety Report 14219061 (Version 5)
Quarter: 2022Q3

REPORT INFORMATION
  Report Type: Spontaneous
  Country: US (occurrence: US)
  Receive Date: 20171123
  Receipt Date: 20220723
  Transmission Date: 20221027
  Serious: Yes (Other)
  Sender: FDA-Public Use
  Company Number: US-JNJFOC-20171010087

PATIENT
  Age: 13 Year
  Sex: Male

DRUGS (10)
  1. RISPERDAL [Suspect]
     Active Substance: RISPERIDONE
     Indication: Bipolar disorder
     Route: 048
     Dates: start: 20030228, end: 20030915
  2. RISPERDAL [Suspect]
     Active Substance: RISPERIDONE
     Indication: Obsessive-compulsive disorder
     Route: 048
     Dates: start: 20060423, end: 20060715
  3. RISPERDAL [Suspect]
     Active Substance: RISPERIDONE
     Route: 048
     Dates: start: 20060716, end: 20070209
  4. RISPERDAL [Suspect]
     Active Substance: RISPERIDONE
     Route: 048
     Dates: start: 20070921, end: 20071021
  5. RISPERDAL [Suspect]
     Active Substance: RISPERIDONE
     Route: 048
     Dates: start: 2007, end: 2015
  6. RISPERIDONE [Suspect]
     Active Substance: RISPERIDONE
     Indication: Product used for unknown indication
     Route: 048
     Dates: start: 2009, end: 2009
  7. INVEGA [Suspect]
     Active Substance: PALIPERIDONE
     Indication: Obsessive-compulsive disorder
     Route: 048
     Dates: start: 20080602, end: 20080702
  8. INVEGA [Suspect]
     Active Substance: PALIPERIDONE
     Indication: Bipolar disorder
     Route: 048
     Dates: start: 200807
  9. SEROQUEL [Suspect]
     Active Substance: QUETIAPINE FUMARATE
     Indication: Bipolar disorder
     Route: 065
     Dates: start: 20081219, end: 20100421
  10. SEROQUEL [Suspect]
     Active Substance: QUETIAPINE FUMARATE
     Indication: Obsessive-compulsive disorder

REACTIONS (5)
  - Obesity [Unknown]
  - Emotional distress [Unknown]
  - Gynaecomastia [Unknown]
  - Drug ineffective [Unknown]
  - Drug ineffective [Unknown]

NARRATIVE: CASE EVENT DATE: 20070101
